FAERS Safety Report 12419571 (Version 1)
Quarter: 2016Q2

REPORT INFORMATION
  Report Type: Spontaneous
  Country: CA (occurrence: CA)
  Receive Date: 20160531
  Receipt Date: 20160531
  Transmission Date: 20160815
  Serious: Yes (Hospitalization)
  Sender: FDA-Public Use
  Company Number: CA-NOVOPROD-493067

PATIENT
  Age: 19 Year
  Sex: Female

DRUGS (3)
  1. SAXENDA [Suspect]
     Active Substance: LIRAGLUTIDE
     Dosage: 0.6 MG, QD
     Route: 065
  2. SAXENDA [Suspect]
     Active Substance: LIRAGLUTIDE
     Indication: PRODUCT USED FOR UNKNOWN INDICATION
     Dosage: 0.6 MG, QD
     Route: 065
  3. SAXENDA [Suspect]
     Active Substance: LIRAGLUTIDE
     Dosage: 1.2 MG, QD
     Route: 065

REACTIONS (2)
  - Suicidal ideation [Unknown]
  - Nausea [Unknown]
